FAERS Safety Report 11764590 (Version 1)
Quarter: 2015Q4

REPORT INFORMATION
  Report Type: Spontaneous
  Country: US (occurrence: US)
  Receive Date: 20151121
  Receipt Date: 20151121
  Transmission Date: 20160304
  Serious: No
  Sender: FDA-Public Use
  Company Number: US-009507513-1511USA011613

PATIENT

DRUGS (1)
  1. CLARINEX [Suspect]
     Active Substance: DESLORATADINE
     Dosage: 5 MG, BID
     Route: 048

REACTIONS (3)
  - No adverse event [Unknown]
  - Overdose [Unknown]
  - Inappropriate schedule of drug administration [Unknown]
